FAERS Safety Report 4574280-6 (Version None)
Quarter: 2005Q1

REPORT INFORMATION
  Report Type: 
  Country: None (occurrence: None)
  Receive Date: 20050208
  Receipt Date: 20041203
  Transmission Date: 20050727
  Serious: No
  Sender: FDA-Public Use
  Company Number: US-GLAXOSMITHKLINE-A0536027A

PATIENT
  Age: 26 Year
  Sex: Female

DRUGS (2)
  1. PAXIL [Suspect]
     Indication: DEPRESSION
     Dosage: 25MG PER DAY
     Route: 048
     Dates: start: 20040401
  2. WELLBUTRIN [Concomitant]

REACTIONS (7)
  - DEPRESSIVE SYMPTOM [None]
  - DIZZINESS [None]
  - DRY EYE [None]
  - DRY MOUTH [None]
  - HEADACHE [None]
  - INSOMNIA [None]
  - NAUSEA [None]
